FAERS Safety Report 25699319 (Version 1)
Quarter: 2025Q3

REPORT INFORMATION
  Report Type: Spontaneous
  Country: EU (occurrence: EU)
  Receive Date: 20250819
  Receipt Date: 20250819
  Transmission Date: 20251020
  Serious: Yes (Hospitalization, Other)
  Sender: AUROBINDO
  Company Number: EU-AFSSAPS-NY2025001142

PATIENT
  Age: 69 Year
  Sex: Female

DRUGS (7)
  1. MIRTAZAPINE [Suspect]
     Active Substance: MIRTAZAPINE
     Indication: Depression
     Dosage: 30 MILLIGRAM, ONCE A DAY
     Route: 048
     Dates: start: 20200630
  2. LERCANIDIPINE [Suspect]
     Active Substance: LERCANIDIPINE
     Indication: Hypertension
     Dosage: 10 MILLIGRAM, ONCE A DAY
     Route: 048
     Dates: start: 20151001
  3. LORMETAZEPAM [Suspect]
     Active Substance: LORMETAZEPAM
     Indication: Sleep disorder
     Dosage: 4 MILLIGRAM, ONCE A DAY
     Route: 048
     Dates: start: 20151001
  4. ZOPICLONE [Suspect]
     Active Substance: ZOPICLONE
     Indication: Sleep disorder
     Dosage: 7.5 MILLIGRAM, ONCE A DAY
     Route: 048
     Dates: start: 20151001
  5. OXAZEPAM [Suspect]
     Active Substance: OXAZEPAM
     Indication: Anxiety
     Dosage: 5 MILLIGRAM, 3 TIMES A DAY
     Route: 048
     Dates: start: 20151001
  6. ESOMEPRAZOLE [Concomitant]
     Active Substance: ESOMEPRAZOLE
     Indication: Gastrooesophageal reflux disease
     Dosage: 40 MILLIGRAM, ONCE A DAY
     Route: 048
     Dates: start: 20151001
  7. LANTUS [Concomitant]
     Active Substance: INSULIN GLARGINE
     Indication: Insulin-requiring type 2 diabetes mellitus
     Dosage: 100 INTERNATIONAL UNIT, ONCE A DAY
     Route: 048
     Dates: start: 20151001

REACTIONS (2)
  - Femoral neck fracture [Recovering/Resolving]
  - Fall [Recovering/Resolving]

NARRATIVE: CASE EVENT DATE: 20220701
